FAERS Safety Report 4988958-3 (Version None)
Quarter: 2006Q1

REPORT INFORMATION
  Report Type: 
  Country: None (occurrence: None)
  Receive Date: 20060314
  Receipt Date: 20051118
  Transmission Date: 20060701
  Serious: Yes (Other)
  Sender: FDA-Public Use
  Company Number: 200513593BCC

PATIENT
  Age: 73 Year
  Sex: Male
  Weight: 63.5036 kg

DRUGS (1)
  1. ALEVE (CAPLET) [Suspect]
     Indication: ANALGESIC EFFECT
     Dosage: 440 MG, QD, ORAL ; 440 MG, BID ORAL
     Route: 048
     Dates: start: 20050801

REACTIONS (1)
  - BLOOD URINE PRESENT [None]
